FAERS Safety Report 7206366-1 (Version None)
Quarter: 2011Q1

REPORT INFORMATION
  Report Type: 
  Country: None (occurrence: None)
  Receive Date: 20110103
  Receipt Date: 20110103
  Transmission Date: 20110831
  Serious: Yes (Hospitalization)
  Sender: FDA-Public Use
  Company Number: PHHO2007DE13378

PATIENT
  Sex: Male
  Weight: 91.5 kg

DRUGS (6)
  1. RAMIPRIL [Suspect]
     Dosage: 10 MG / DAY
     Route: 048
     Dates: end: 20070808
  2. ALPHA-ADRENORECEPTOR ANTAGONISTS [Concomitant]
  3. CERTICAN [Suspect]
     Indication: CONGENITAL CYSTIC KIDNEY DISEASE
     Dosage: UNK
     Route: 048
     Dates: start: 20070502, end: 20070809
  4. CERTICAN [Suspect]
     Dosage: CODE NOT BROKEN
     Route: 048
     Dates: start: 20070817
  5. DIURETICS [Concomitant]
  6. BETA BLOCKING AGENTS [Concomitant]

REACTIONS (2)
  - LIP SWELLING [None]
  - ANGIOEDEMA [None]
